FAERS Safety Report 10363336 (Version 1)
Quarter: 2014Q1

REPORT INFORMATION
  Report Type: Spontaneous
  Country: US (occurrence: None)
  Receive Date: 20140306
  Receipt Date: 20140306
  Transmission Date: 20141002
  Serious: Yes (Hospitalization)
  Sender: FDA-Public Use
  Company Number: 163-21880-13061706

PATIENT
  Age: 68 Year
  Sex: Male
  Weight: 68 kg

DRUGS (13)
  1. REVLIMID [Suspect]
     Indication: PLASMA CELL MYELOMA
     Route: 048
     Dates: start: 20130513, end: 20130524
  2. PANTOPRAZOLE SODIUM (PANTOPRAZOLE SODIUM) (TABLETS) [Concomitant]
  3. AMLODIPINE BESYLATE (AMLODIPINE BESILATE) (TABLETS) [Concomitant]
  4. VALACYCLOVIR HCL (VALACICLOVIR HYDROCHLORIDE) (TABLETS) [Concomitant]
  5. FUROSEMIDE (FUROSEMIDE) (TABLETS) [Concomitant]
  6. LIPITOR (ATORVASTATIN) (TABLETS) [Concomitant]
  7. MINOCYCLINE (MINOCYCLINE) (CAPSULES) [Concomitant]
  8. SIMVASTATIN (SIMVASTATIN) (TABLETS) [Concomitant]
  9. GLYBURIDE (GLIBENCLAMIDE) (TABLETS) [Concomitant]
  10. GABAPENTIN (GABAPENTIN) (CAPSULES) [Concomitant]
  11. METOPROLOL SUCCINATE (METOPROLOL SUCCINATE) (TABLETS) [Concomitant]
  12. KLOR CON (POTASSIUM CHLORIDE) (TABLETS) [Concomitant]
  13. ALLOPURINOL (ALLOPURINOL) (TABLETS) [Concomitant]

REACTIONS (2)
  - Infection [None]
  - Drug intolerance [None]
